FAERS Safety Report 4352768-0 (Version None)
Quarter: 2004Q2

REPORT INFORMATION
  Report Type: 
  Country: None (occurrence: None)
  Receive Date: 20040504
  Receipt Date: 20040427
  Transmission Date: 20050107
  Serious: Yes (Hospitalization)
  Sender: FDA-Public Use
  Company Number: US-ROCHE-365911

PATIENT
  Age: 56 Year
  Sex: Female

DRUGS (7)
  1. COPEGUS [Suspect]
     Indication: HEPATITIS C
     Route: 065
     Dates: start: 20040210, end: 20040323
  2. PEG-INTRON [Suspect]
     Indication: HEPATITIS C
     Dosage: FORM REPORTED AS INJECTABLE POWDER
     Route: 058
     Dates: start: 20040210, end: 20040323
  3. LIVER EXTRACT [Concomitant]
  4. ALPHA LIPOIC  ACID [Concomitant]
     Dosage: ANTIOXIDANT
  5. MILK THISTLE [Concomitant]
     Dosage: REPORTER AS MILK THISTLE FRUIT
  6. ATENOLOL [Concomitant]
     Route: 048
  7. B 50 COMPLEX [Concomitant]

REACTIONS (4)
  - DEHYDRATION [None]
  - DIARRHOEA [None]
  - PANCYTOPENIA [None]
  - VOMITING [None]
